FAERS Safety Report 6080488-3 (Version None)
Quarter: 2009Q1

REPORT INFORMATION
  Report Type: 
  Country: None (occurrence: None)
  Receive Date: 20090217
  Receipt Date: 20090211
  Transmission Date: 20090719
  Serious: Yes (Hospitalization, Congenital Anomaly)
  Sender: FDA-Public Use
  Company Number: A0662913A

PATIENT
  Sex: Male
  Weight: 3.3 kg

DRUGS (4)
  1. PAXIL [Suspect]
     Indication: DEPRESSION
     Dosage: 20MG PER DAY
     Dates: start: 19980501, end: 19991001
  2. VITAMIN TAB [Concomitant]
  3. FLAGYL [Concomitant]
     Dates: start: 19990301, end: 19990901
  4. MACROBID [Concomitant]
     Dates: start: 19990514

REACTIONS (6)
  - DEVELOPMENTAL DELAY [None]
  - DRUG EXPOSURE DURING PREGNANCY [None]
  - FALLOT'S TETRALOGY [None]
  - PULMONARY VALVE STENOSIS [None]
  - RESPIRATORY FAILURE [None]
  - VENTRICULAR SEPTAL DEFECT [None]
